FAERS Safety Report 7169837-2 (Version None)
Quarter: 2010Q4

REPORT INFORMATION
  Report Type: 
  Country: None (occurrence: None)
  Receive Date: 20101217
  Receipt Date: 20101203
  Transmission Date: 20110411
  Serious: Yes (Hospitalization, Other)
  Sender: FDA-Public Use
  Company Number: PHHY2010CA74122

PATIENT
  Sex: Male

DRUGS (3)
  1. CLOZARIL [Suspect]
     Dosage: 75 MG DAILY PER OS
     Route: 048
     Dates: start: 20101022
  2. EPIVAL [Concomitant]
  3. CLOPIXOL [Suspect]

REACTIONS (9)
  - BLOOD PRESSURE INCREASED [None]
  - CARDIAC MURMUR [None]
  - HEAD TITUBATION [None]
  - HEART RATE INCREASED [None]
  - MOVEMENT DISORDER [None]
  - PETIT MAL EPILEPSY [None]
  - SLEEP APNOEA SYNDROME [None]
  - SPEECH DISORDER [None]
  - UNRESPONSIVE TO STIMULI [None]
